FAERS Safety Report 6785937-0 (Version None)
Quarter: 2010Q2

REPORT INFORMATION
  Report Type: 
  Country: None (occurrence: None)
  Receive Date: 20100623
  Receipt Date: 20100614
  Transmission Date: 20101027
  Serious: Yes (Hospitalization)
  Sender: FDA-Public Use
  Company Number: EMADSS2002008036

PATIENT
  Age: 59 Year
  Sex: Female

DRUGS (6)
  1. REMICADE [Suspect]
     Indication: RHEUMATOID ARTHRITIS
     Route: 041
     Dates: start: 20021106
  2. INACID [Concomitant]
     Route: 048
  3. DEZACOR [Concomitant]
     Indication: RHEUMATOID ARTHRITIS
     Route: 048
  4. LEVOTHROID [Concomitant]
     Route: 048
  5. OMEPRAZOLE [Concomitant]
     Route: 048
     Dates: end: 20021114
  6. METHOTREXATE [Concomitant]
     Indication: RHEUMATOID ARTHRITIS
     Route: 048

REACTIONS (1)
  - PNEUMONIA LEGIONELLA [None]
